FAERS Safety Report 7916634-3 (Version None)
Quarter: 2011Q4

REPORT INFORMATION
  Report Type: 
  Country: None (occurrence: None)
  Receive Date: 20111103
  Receipt Date: 20111019
  Transmission Date: 20120403
  Serious: Yes (Death)
  Sender: FDA-Public Use
  Company Number: 003-066

PATIENT
  Age: 54 Year
  Sex: Male

DRUGS (9)
  1. CROFAB [Suspect]
  2. DILAUDED [Concomitant]
  3. ANTIBIOTICS [Concomitant]
  4. DOPAMINE HCL [Concomitant]
  5. DIPHENHYDRAMINE HCL [Concomitant]
  6. VERSED [Concomitant]
  7. EPINEPHRINE [Concomitant]
  8. VASOPRESSORS [Concomitant]
  9. CROFAB [Suspect]
     Indication: SNAKE BITE
     Dosage: 20 TOTAL VIAL
     Dates: start: 20111017, end: 20111020

REACTIONS (12)
  - HAEMOGLOBIN DECREASED [None]
  - ASPARTATE AMINOTRANSFERASE INCREASED [None]
  - URINE OUTPUT DECREASED [None]
  - BLOOD UREA INCREASED [None]
  - HAEMATOCRIT DECREASED [None]
  - SINUS TACHYCARDIA [None]
  - BLOOD CREATININE INCREASED [None]
  - HAEMORRHAGE [None]
  - BLOOD CREATINE PHOSPHOKINASE INCREASED [None]
  - BODY TEMPERATURE INCREASED [None]
  - ELECTROCARDIOGRAM POOR R-WAVE PROGRESSION [None]
  - ALANINE AMINOTRANSFERASE INCREASED [None]
